FAERS Safety Report 21015708 (Version 2)
Quarter: 2022Q3

REPORT INFORMATION
  Report Type: Spontaneous
  Country: PL (occurrence: PL)
  Receive Date: 20220628
  Receipt Date: 20220704
  Transmission Date: 20221027
  Serious: Yes (Death, Other)
  Sender: FDA-Public Use
  Company Number: PL-AMGEN-POLSP2022107396

PATIENT
  Sex: Female

DRUGS (5)
  1. FILGRASTIM [Suspect]
     Active Substance: FILGRASTIM
     Indication: Pancytopenia
     Dosage: UNK
     Route: 065
  2. FILGRASTIM [Suspect]
     Active Substance: FILGRASTIM
     Indication: Off label use
  3. METHYLPREDNISOLONE [Concomitant]
     Active Substance: METHYLPREDNISOLONE
     Indication: Mucocutaneous candidiasis
     Dosage: UNK
     Route: 042
  4. RUXOLITINIB [Concomitant]
     Active Substance: RUXOLITINIB
     Indication: Mucocutaneous candidiasis
     Dosage: 10 MILLIGRAM, BID
  5. POSACONAZOLE [Concomitant]
     Active Substance: POSACONAZOLE
     Indication: Mucocutaneous candidiasis
     Dosage: UNK

REACTIONS (5)
  - Sepsis [Fatal]
  - Aplastic anaemia [Unknown]
  - Bone marrow failure [Unknown]
  - Off label use [Unknown]
  - Drug ineffective for unapproved indication [Unknown]
